FAERS Safety Report 20297621 (Version 1)
Quarter: 2022Q1

REPORT INFORMATION
  Report Type: Spontaneous
  Country: US (occurrence: None)
  Receive Date: 20220105
  Receipt Date: 20220105
  Transmission Date: 20220424
  Serious: No
  Sender: FDA-Public Use
  Company Number: US-ROCHE-2753839

PATIENT
  Sex: Male

DRUGS (4)
  1. HEMLIBRA [Suspect]
     Active Substance: EMICIZUMAB-KXWH
     Indication: Factor VIII deficiency
     Dosage: MAINTENA NCE DOSE: INJECT HEMLIBRA 360MG SUBCUTAN EOUSLY ONCE A MONTH.US E 2 X 150MG + 1X60MG PER DO
     Route: 058
  2. CLARITIN [Concomitant]
     Active Substance: LORATADINE
  3. SINGULAIR [Concomitant]
     Active Substance: MONTELUKAST SODIUM
  4. ADYNOVATE [Concomitant]
     Active Substance: ANTIHEMOPHILIC FACTOR, HUMAN RECOMBINANT
     Dosage: 1251-2500?UNIT VIAL

REACTIONS (1)
  - Haemorrhage [Unknown]
